FAERS Safety Report 15094039 (Version 2)
Quarter: 2018Q3

REPORT INFORMATION
  Report Type: Report from Study
  Country: FR (occurrence: FR)
  Receive Date: 20180629
  Receipt Date: 20180807
  Transmission Date: 20181010
  Serious: Yes (Hospitalization)
  Sender: FDA-Public Use
  Company Number: FR-ROCHE-2144595

PATIENT
  Age: 60 Year
  Sex: Male
  Weight: 65 kg

DRUGS (6)
  1. BEVACIZUMAB. [Suspect]
     Active Substance: BEVACIZUMAB
     Indication: NEUROENDOCRINE CARCINOMA
     Dosage: 5 MG/KG
     Route: 042
     Dates: start: 20170906, end: 20170906
  2. LEVOFOLINATE [Concomitant]
     Active Substance: LEVOLEUCOVORIN CALCIUM
     Route: 042
  3. BEVACIZUMAB. [Suspect]
     Active Substance: BEVACIZUMAB
     Route: 042
     Dates: start: 20180606, end: 20180618
  4. IRINOTECAN [Concomitant]
     Active Substance: IRINOTECAN
     Dosage: LAST CYCLE BEFORE SAE: 05/APR/2018
     Route: 042
     Dates: start: 20170906
  5. 5?FLUOROURACIL [Concomitant]
     Active Substance: FLUOROURACIL
     Dosage: LAST CYCLE BEFORE SAE: 05/APR/2018
     Route: 042
     Dates: start: 20170906
  6. LEVOFOLINATE [Concomitant]
     Active Substance: LEVOLEUCOVORIN CALCIUM
     Dosage: LAST CYCLE BEFORE SAE: 05/APR/2018
     Route: 042
     Dates: start: 20170806

REACTIONS (3)
  - Fatigue [Not Recovered/Not Resolved]
  - Confusional state [Recovered/Resolved]
  - Weight decreased [Not Recovered/Not Resolved]

NARRATIVE: CASE EVENT DATE: 20180618
